FAERS Safety Report 8495116-7 (Version None)
Quarter: 2012Q3

REPORT INFORMATION
  Report Type: 
  Country: None (occurrence: None)
  Receive Date: 20120709
  Receipt Date: 20120703
  Transmission Date: 20120928
  Serious: No
  Sender: FDA-Public Use
  Company Number: FR-JNJFOC-20120702053

PATIENT
  Age: 5 Decade
  Sex: Female

DRUGS (3)
  1. ANALGESICS [Concomitant]
  2. DURAGESIC-100 [Suspect]
     Indication: CANCER PAIN
     Route: 062
     Dates: end: 20120701
  3. DURAGESIC-100 [Suspect]
     Route: 062
     Dates: start: 20120701

REACTIONS (3)
  - PAIN [None]
  - APPLICATION SITE WARMTH [None]
  - TREATMENT NONCOMPLIANCE [None]
